FAERS Safety Report 15436022 (Version 1)
Quarter: 2018Q3

REPORT INFORMATION
  Report Type: Spontaneous
  Country: US (occurrence: US)
  Receive Date: 20180924
  Receipt Date: 20180924
  Transmission Date: 20181010
  Serious: No
  Sender: FDA-Public Use
  Company Number: None

PATIENT
  Age: 76 Year
  Sex: Female

DRUGS (2)
  1. BEXAROTENE CAP 75MG [Suspect]
     Active Substance: BEXAROTENE
     Dates: start: 20170826
  2. FENOFIBRATE. [Suspect]
     Active Substance: FENOFIBRATE

REACTIONS (2)
  - Pain in extremity [None]
  - Neuropathy peripheral [None]

NARRATIVE: CASE EVENT DATE: 20180922
